FAERS Safety Report 15807811 (Version 2)
Quarter: 2019Q1

REPORT INFORMATION
  Report Type: Spontaneous
  Country: US (occurrence: US)
  Receive Date: 20190110
  Receipt Date: 20190114
  Transmission Date: 20190417
  Serious: Yes (Other)
  Sender: FDA-Public Use
  Company Number: US-PFIZER INC-2019012781

PATIENT
  Age: 32 Year
  Sex: Male

DRUGS (2)
  1. AMPHOTERICIN [Suspect]
     Active Substance: AMPHOTERICIN B
     Indication: MENINGITIS FUNGAL
     Dosage: UNK
  2. VFEND [Suspect]
     Active Substance: VORICONAZOLE
     Indication: MENINGITIS FUNGAL
     Dosage: 200 MG, 2X/DAY
     Route: 048

REACTIONS (3)
  - Disease progression [Unknown]
  - Drug ineffective [Unknown]
  - Meningitis [Unknown]
